FAERS Safety Report 5417207-7 (Version None)
Quarter: 2007Q3

REPORT INFORMATION
  Report Type: 
  Country: None (occurrence: None)
  Receive Date: 20070814
  Receipt Date: 20070807
  Transmission Date: 20080115
  Serious: Yes (Death, Hospitalization)
  Sender: FDA-Public Use
  Company Number: 163-21880-07030014

PATIENT
  Age: 49 Year
  Sex: Female
  Weight: 114.76 kg

DRUGS (6)
  1. REVLIMID [Suspect]
     Indication: MULTIPLE MYELOMA
     Dosage: 25 MG, QD X21 DAYS ON AND 7 DAYS OFF, ORAL
     Route: 048
     Dates: start: 20061031, end: 20070301
  2. MORPHINE SULFATE [Concomitant]
  3. DURAGESIC (FENTANYL) (PILL) [Concomitant]
  4. DEXAMETHASONE TAB [Concomitant]
  5. ATIVAN [Concomitant]
  6. ZOFRAN [Concomitant]

REACTIONS (3)
  - DEEP VEIN THROMBOSIS [None]
  - MALIGNANT NEOPLASM PROGRESSION [None]
  - MULTIPLE MYELOMA [None]
